FAERS Safety Report 9197246 (Version 3)
Quarter: 2015Q2

REPORT INFORMATION
  Report Type: Spontaneous
  Country: US (occurrence: US)
  Receive Date: 20130328
  Receipt Date: 20150602
  Transmission Date: 20150821
  Serious: Yes (Hospitalization)
  Sender: FDA-Public Use
  Company Number: US-BAYER-2013-036850

PATIENT
  Age: 39 Year
  Sex: Female
  Weight: 63 kg

DRUGS (15)
  1. ZYRTEC [Concomitant]
     Active Substance: CETIRIZINE HYDROCHLORIDE
     Indication: SEASONAL ALLERGY
  2. ZOFRAN [Concomitant]
     Active Substance: ONDANSETRON HYDROCHLORIDE
  3. TOPAMAX [Concomitant]
     Active Substance: TOPIRAMATE
     Indication: MIGRAINE PROPHYLAXIS
     Dosage: 25 MG, TAKE 1 TABLET BID
  4. FOLTX [Concomitant]
     Active Substance: CYANOCOBALAMIN CO-57\FOLIC ACID\PYRIDOXINE HYDROCHLORIDE
     Dosage: ONE TAB ORAL DAILY
     Route: 048
  5. NAPROXEN. [Concomitant]
     Active Substance: NAPROXEN
  6. YAZ [Suspect]
     Active Substance: DROSPIRENONE\ETHINYL ESTRADIOL
  7. VITAMIN D [Concomitant]
     Active Substance: CHOLECALCIFEROL
     Dosage: 1.25 MG, 1 CAPSULE BY MOUTH WEEKLY
  8. VICODIN [Concomitant]
     Active Substance: ACETAMINOPHEN\HYDROCODONE BITARTRATE
     Dosage: 5-500 MG TAB ORAL EVERY SIX HOURS
     Route: 048
  9. ADDERALL [Concomitant]
     Active Substance: AMPHETAMINE ASPARTATE\AMPHETAMINE SULFATE\DEXTROAMPHETAMINE SACCHARATE\DEXTROAMPHETAMINE SULFATE
     Indication: DISTURBANCE IN ATTENTION
  10. OCELLA [Suspect]
     Active Substance: DROSPIRENONE\ETHINYL ESTRADIOL
     Indication: CONTRACEPTION
     Dosage: UNK
     Dates: start: 2008, end: 201204
  11. TOPAMAX [Concomitant]
     Active Substance: TOPIRAMATE
     Indication: MIGRAINE PROPHYLAXIS
     Dosage: 50 UNK, UNK
     Dates: start: 2010
  12. LEVOPHED [Concomitant]
     Active Substance: NOREPINEPHRINE BITARTRATE
     Indication: HYPOTENSION
  13. PHENERGAN [PROMETHAZINE] [Concomitant]
  14. AMPHETAMINE SALTS [Concomitant]
     Active Substance: AMPHETAMINE ASPARTATE\AMPHETAMINE SULFATE\DEXTROAMPHETAMINE SACCHARATE\DEXTROAMPHETAMINE SULFATE
     Dosage: 10 MG, TAKE 1 TAB EVERY MORNING
  15. AMBIEN [Concomitant]
     Active Substance: ZOLPIDEM TARTRATE
     Indication: INSOMNIA
     Dosage: 10 MG, TAKE 1 TABLET HS

REACTIONS (14)
  - Pulmonary embolism [None]
  - Pelvic venous thrombosis [None]
  - Dyspnoea [None]
  - Pain in extremity [Not Recovered/Not Resolved]
  - Dizziness [None]
  - Syncope [None]
  - Injury [Not Recovered/Not Resolved]
  - Asthenia [None]
  - Cholecystitis acute [None]
  - Nausea [None]
  - Deep vein thrombosis [Not Recovered/Not Resolved]
  - Vomiting [None]
  - Pain [None]
  - Fear of disease [None]

NARRATIVE: CASE EVENT DATE: 20120419
